FAERS Safety Report 14230290 (Version 1)
Quarter: 2017Q4

REPORT INFORMATION
  Report Type: Not Available
  Country: US (occurrence: US)
  Receive Date: 20171128
  Receipt Date: 20171128
  Transmission Date: 20180321
  Serious: No
  Sender: FDA-Public Use
  Company Number: US-NEUROCRINE BIOSCIENCES INC.-2017NBI01259

PATIENT
  Age: 86 Year
  Sex: Female
  Weight: 80.81 kg

DRUGS (2)
  1. INGREZZA [Suspect]
     Active Substance: VALBENAZINE
     Indication: DYSKINESIA
     Route: 048
     Dates: start: 20171003, end: 20171009
  2. INGREZZA [Suspect]
     Active Substance: VALBENAZINE
     Route: 048
     Dates: start: 20171010

REACTIONS (2)
  - Restlessness [Unknown]
  - Lack of spontaneous speech [Unknown]

NARRATIVE: CASE EVENT DATE: 201710
